FAERS Safety Report 17993762 (Version 2)
Quarter: 2020Q3

REPORT INFORMATION
  Report Type: Report from Study
  Country: GB (occurrence: GB)
  Receive Date: 20200708
  Receipt Date: 20200928
  Transmission Date: 20201103
  Serious: Yes (Hospitalization, Other)
  Sender: FDA-Public Use
  Company Number: GB-AUROBINDO-AUR-APL-2020-033554

PATIENT
  Age: 25 Year
  Sex: Male

DRUGS (1)
  1. PHENYTOIN. [Suspect]
     Active Substance: PHENYTOIN
     Indication: SEIZURE
     Dosage: UNK
     Route: 065

REACTIONS (9)
  - Gamma-glutamyltransferase increased [Unknown]
  - Hepatic function abnormal [Unknown]
  - Rash [Unknown]
  - Eosinophil count increased [Unknown]
  - Pyrexia [Unknown]
  - Aspartate aminotransferase increased [Unknown]
  - Blood alkaline phosphatase increased [Unknown]
  - Urticaria papular [Unknown]
  - Drug reaction with eosinophilia and systemic symptoms [Unknown]
